FAERS Safety Report 6407664-1 (Version None)
Quarter: 2009Q4

REPORT INFORMATION
  Report Type: 
  Country: None (occurrence: None)
  Receive Date: 20091020
  Receipt Date: 20091014
  Transmission Date: 20100525
  Serious: Yes (Death)
  Sender: FDA-Public Use
  Company Number: PHHY2008JP27451

PATIENT
  Age: 60 Year
  Sex: Female
  Weight: 60 kg

DRUGS (2)
  1. EXJADE [Suspect]
     Indication: IRON OVERLOAD
     Dosage: 1000MG/DAY
     Route: 048
     Dates: start: 20080724, end: 20081028
  2. NEORAL [Concomitant]
     Dosage: 200 MG/DAY
     Dates: start: 20080818, end: 20081028

REACTIONS (4)
  - ANAL ABSCESS [None]
  - DISEASE PROGRESSION [None]
  - MYELODYSPLASTIC SYNDROME [None]
  - SEPSIS [None]
